FAERS Safety Report 7323175-3 (Version None)
Quarter: 2011Q1

REPORT INFORMATION
  Report Type: 
  Country: None (occurrence: None)
  Receive Date: 20110301
  Receipt Date: 20110224
  Transmission Date: 20110831
  Serious: Yes (Hospitalization)
  Sender: FDA-Public Use
  Company Number: JP-PFIZER INC-2011040138

PATIENT
  Age: 89 Year
  Sex: Female

DRUGS (14)
  1. PARIET [Concomitant]
     Dosage: 10 MG, 1X/DAY
     Route: 048
  2. TORASEMIDE [Concomitant]
     Dosage: 4 MG, 1X/DAY
     Route: 048
  3. MUCOSTA [Concomitant]
     Indication: BACK PAIN
     Dosage: 200 MG/DAY
     Route: 048
  4. VOLTAREN [Concomitant]
     Indication: BACK PAIN
     Dosage: UNK
     Route: 062
  5. CONIEL [Concomitant]
     Dosage: 4 MG, 1X/DAY
     Route: 048
  6. LOXONIN [Concomitant]
     Indication: BACK PAIN
     Dosage: 120 MG/DAY
     Route: 048
  7. ASPIRIN [Concomitant]
     Dosage: 100 MG, 1X/DAY
     Route: 048
  8. ALLOPURINOL [Concomitant]
     Dosage: 100 MG, 1X/DAY
     Route: 048
  9. MERISLON [Concomitant]
     Dosage: 18 MG/DAY
     Route: 048
  10. PROCYLIN [Concomitant]
     Dosage: 60 UG/DAY
     Route: 048
  11. BLOPRESS [Concomitant]
     Dosage: 8 MG, 1X/DAY
     Route: 048
  12. LYRICA [Suspect]
     Indication: BACK PAIN
     Dosage: 75 MG/DAY
     Route: 048
     Dates: start: 20110112, end: 20110113
  13. SIGMART [Concomitant]
     Dosage: 15 MG/DAY
     Route: 048
  14. KLARICID [Concomitant]
     Dosage: 50 MG, 1X/DAY
     Route: 048

REACTIONS (1)
  - LOSS OF CONSCIOUSNESS [None]
